FAERS Safety Report 12168602 (Version 2)
Quarter: 2016Q1

REPORT INFORMATION
  Report Type: Report from Study
  Country: US (occurrence: US)
  Receive Date: 20160310
  Receipt Date: 20160331
  Transmission Date: 20160526
  Serious: No
  Sender: FDA-Public Use
  Company Number: GXBR2016US000694

PATIENT
  Age: 7 Year
  Sex: Female
  Weight: 20.86 kg

DRUGS (7)
  1. DIURIL [Concomitant]
     Active Substance: CHLOROTHIAZIDE
     Indication: OEDEMA
     Dosage: 4.6 MG, BID
     Dates: start: 20160201
  2. OMNITROPE [Suspect]
     Active Substance: SOMATROPIN
     Dosage: 1 MG, QD
     Route: 065
     Dates: start: 201511
  3. OMNITROPE [Suspect]
     Active Substance: SOMATROPIN
     Dosage: 1.0 MG. QD
     Route: 065
     Dates: start: 20160108
  4. OMNITROPE [Suspect]
     Active Substance: SOMATROPIN
     Indication: HYPOPITUITARISM
     Dosage: 0.8 MG, QD
     Route: 065
  5. SYNTHROID [Concomitant]
     Active Substance: LEVOTHYROXINE SODIUM
     Dosage: .625 MG, UNK
     Route: 048
  6. OMNITROPE [Suspect]
     Active Substance: SOMATROPIN
     Dosage: 0.8 MG, QD
     Route: 065
     Dates: start: 20151221, end: 20160108
  7. MELATONIN [Concomitant]
     Active Substance: MELATONIN
     Indication: SLEEP DISORDER
     Dosage: 3 MG, QHS

REACTIONS (4)
  - Therapeutic response decreased [Not Recovered/Not Resolved]
  - Peripheral swelling [Not Recovered/Not Resolved]
  - Arthralgia [Not Recovered/Not Resolved]
  - Weight increased [Not Recovered/Not Resolved]

NARRATIVE: CASE EVENT DATE: 20151220
